FAERS Safety Report 5660587-8 (Version None)
Quarter: 2008Q1

REPORT INFORMATION
  Report Type: 
  Country: None (occurrence: None)
  Receive Date: 20080311
  Receipt Date: 20071116
  Transmission Date: 20080703
  Serious: No
  Sender: FDA-Public Use
  Company Number: US-BAYER-200713820BCC

PATIENT
  Age: 54 Year
  Sex: Male
  Weight: 145 kg

DRUGS (7)
  1. ALEVE [Suspect]
     Indication: ARTHRITIS
     Route: 048
  2. MORPHINE [Concomitant]
  3. ALPRAZOLAM [Concomitant]
  4. SOMA [Concomitant]
  5. FLEXERIL [Concomitant]
  6. BENEDRYL [Concomitant]
  7. FOLIC ACID [Concomitant]

REACTIONS (2)
  - ARTHRITIS [None]
  - BACK PAIN [None]
